FAERS Safety Report 9842493 (Version 1)
Quarter: 2013Q4

REPORT INFORMATION
  Report Type: Spontaneous
  Country: US (occurrence: None)
  Receive Date: 20131223
  Receipt Date: 20131223
  Transmission Date: 20140711
  Serious: No
  Sender: FDA-Public Use
  Company Number: 218552LEO

PATIENT
  Age: 61 Year
  Sex: Female

DRUGS (2)
  1. PICATO(0.015%, GEL) [Suspect]
     Indication: ACTINIC KERATOSIS
     Route: 061
     Dates: start: 20120802, end: 20120804
  2. PREMPRO(PROVELLA-14) [Concomitant]

REACTIONS (3)
  - Lacrimation increased [None]
  - Application site erythema [None]
  - Application site dryness [None]
